FAERS Safety Report 8971581 (Version 4)
Quarter: 2014Q2

REPORT INFORMATION
  Report Type: Report from Study
  Country: JP (occurrence: JP)
  Receive Date: 20121217
  Receipt Date: 20140528
  Transmission Date: 20141212
  Serious: Yes (Hospitalization, Disabling)
  Sender: FDA-Public Use
  Company Number: JP-JNJFOC-20121206926

PATIENT
  Age: 63 Year
  Sex: Male
  Weight: 49 kg

DRUGS (7)
  1. STELARA [Suspect]
     Indication: PSORIASIS
     Route: 058
     Dates: start: 20120810
  2. STELARA [Suspect]
     Indication: PSORIASIS
     Route: 058
     Dates: start: 20120518, end: 20120518
  3. STELARA [Suspect]
     Indication: PSORIASIS
     Route: 058
     Dates: start: 20120224, end: 20120224
  4. STELARA [Suspect]
     Indication: PSORIASIS
     Route: 058
     Dates: start: 20111202, end: 20111202
  5. STELARA [Suspect]
     Indication: PSORIASIS
     Route: 058
     Dates: start: 20111102, end: 20111102
  6. ANTEBATE [Concomitant]
     Indication: PSORIASIS
     Route: 061
  7. OXAROL [Concomitant]
     Indication: PSORIASIS
     Route: 061

REACTIONS (4)
  - Oropharyngeal squamous cell carcinoma [Recovered/Resolved]
  - Post procedural fistula [Unknown]
  - Blood alkaline phosphatase increased [Recovered/Resolved]
  - Dysphagia [Unknown]
